FAERS Safety Report 10290245 (Version 1)
Quarter: 2014Q3

REPORT INFORMATION
  Report Type: Spontaneous
  Country: US (occurrence: None)
  Receive Date: 20140708
  Receipt Date: 20140708
  Transmission Date: 20150326
  Serious: Yes (Other)
  Sender: FDA-Public Use
  Company Number: IMP_07676_2014

PATIENT
  Age: 62 Year
  Sex: Male
  Weight: 116.12 kg

DRUGS (12)
  1. PEN NEEDLE MISC. [Concomitant]
  2. PRILOSEC /00661201/ (UNKNOWN) [Concomitant]
  3. ACTOS [Concomitant]
     Active Substance: PIOGLITAZONE HYDROCHLORIDE
  4. FENOFIBRATE. [Suspect]
     Active Substance: FENOFIBRATE
     Indication: HYPERTRIGLYCERIDAEMIA
     Route: 048
     Dates: start: 20120529, end: 20120530
  5. LORTAS [Concomitant]
  6. METFORMIN [Concomitant]
     Active Substance: METFORMIN HYDROCHLORIDE
  7. TRICOR /00499301/ [Concomitant]
  8. DIOVAN [Concomitant]
     Active Substance: VALSARTAN
  9. LANTUS [Concomitant]
     Active Substance: INSULIN GLARGINE
  10. ALLOPURINOL. [Concomitant]
     Active Substance: ALLOPURINOL
  11. NEURONTIN [Concomitant]
     Active Substance: GABAPENTIN
  12. LOSARTAN [Concomitant]
     Active Substance: LOSARTAN

REACTIONS (3)
  - Blood triglycerides increased [None]
  - Drug ineffective [None]
  - Product substitution issue [None]

NARRATIVE: CASE EVENT DATE: 201205
